FAERS Safety Report 12909155 (Version 1)
Quarter: 2016Q4

REPORT INFORMATION
  Report Type: Spontaneous
  Country: US (occurrence: US)
  Receive Date: 20161103
  Receipt Date: 20161103
  Transmission Date: 20170207
  Serious: No
  Sender: FDA-Public Use
  Company Number: US-JAZZ-2016-US-017006

PATIENT
  Sex: Female

DRUGS (56)
  1. TRAMADOL HCL [Concomitant]
     Active Substance: TRAMADOL HYDROCHLORIDE
  2. ROBAXIN [Concomitant]
     Active Substance: METHOCARBAMOL
  3. SENNA [Concomitant]
     Active Substance: SENNA LEAF\SENNOSIDES\SENNOSIDES A AND B
  4. HYDROMORPHONE HCL [Concomitant]
     Active Substance: HYDROMORPHONE HYDROCHLORIDE
  5. MESTINON [Concomitant]
     Active Substance: PYRIDOSTIGMINE BROMIDE
  6. PSYLLIUM [Concomitant]
     Active Substance: PLANTAGO SEED
  7. BENADRYL [Concomitant]
     Active Substance: DIPHENHYDRAMINE HYDROCHLORIDE
  8. CROMOLYN [Concomitant]
     Active Substance: CROMOLYN
  9. XYREM [Suspect]
     Active Substance: SODIUM OXYBATE
     Indication: NARCOLEPSY
     Dosage: 3.75 G, BID
     Route: 048
     Dates: start: 200406, end: 200710
  10. CROMOLYN SODIUM. [Concomitant]
     Active Substance: CROMOLYN SODIUM
  11. SODIUM CHLORIDE. [Concomitant]
     Active Substance: SODIUM CHLORIDE
  12. IMITREX [Concomitant]
     Active Substance: SUMATRIPTAN SUCCINATE
  13. OSCIMIN [Concomitant]
     Active Substance: HYOSCYAMINE SULFATE
  14. LOTRONEX [Concomitant]
     Active Substance: ALOSETRON HYDROCHLORIDE
  15. KETOCONAZOLE. [Concomitant]
     Active Substance: KETOCONAZOLE
  16. DIAZEPAM. [Concomitant]
     Active Substance: DIAZEPAM
  17. ADVIL [Suspect]
     Active Substance: IBUPROFEN
     Indication: PRODUCT USED FOR UNKNOWN INDICATION
  18. FLUDROCORTISONE [Concomitant]
     Active Substance: FLUDROCORTISONE
  19. ONDANSETRON HCL [Concomitant]
     Active Substance: ONDANSETRON HYDROCHLORIDE
  20. XANAX [Concomitant]
     Active Substance: ALPRAZOLAM
  21. XYREM [Suspect]
     Active Substance: SODIUM OXYBATE
     Indication: CATAPLEXY
     Dosage: DOSE ADJUSTMENTS
     Route: 048
     Dates: start: 200710, end: 201310
  22. PREDNISONE. [Concomitant]
     Active Substance: PREDNISONE
  23. BUTRANS [Concomitant]
     Active Substance: BUPRENORPHINE
  24. MODAFINIL. [Concomitant]
     Active Substance: MODAFINIL
  25. BISOPROLOL FUMARATE. [Concomitant]
     Active Substance: BISOPROLOL FUMARATE
  26. SUMATRIPTAN. [Concomitant]
     Active Substance: SUMATRIPTAN
  27. TIZANIDINE HCL [Concomitant]
     Active Substance: TIZANIDINE HYDROCHLORIDE
  28. MIRALAX [Concomitant]
     Active Substance: POLYETHYLENE GLYCOL 3350
  29. PROTONIX [Concomitant]
     Active Substance: PANTOPRAZOLE SODIUM
  30. ERGOCALCIFEROL. [Concomitant]
     Active Substance: ERGOCALCIFEROL
  31. BUSPAR [Concomitant]
     Active Substance: BUSPIRONE HYDROCHLORIDE
  32. LOMOTIL [Concomitant]
     Active Substance: ATROPINE SULFATE\DIPHENOXYLATE HYDROCHLORIDE
  33. WELCHOL [Concomitant]
     Active Substance: COLESEVELAM HYDROCHLORIDE
  34. FENTANYL. [Concomitant]
     Active Substance: FENTANYL
  35. PYRIDOSTIGMINE BROMIDE. [Concomitant]
     Active Substance: PYRIDOSTIGMINE BROMIDE
  36. MOBIC [Suspect]
     Active Substance: MELOXICAM
     Indication: PRODUCT USED FOR UNKNOWN INDICATION
     Route: 048
  37. NAPROXEN. [Concomitant]
     Active Substance: NAPROXEN
  38. CLONAZEPAM. [Concomitant]
     Active Substance: CLONAZEPAM
  39. PERCOCET [Concomitant]
     Active Substance: ACETAMINOPHEN\OXYCODONE HYDROCHLORIDE
  40. ZEBETA [Concomitant]
     Active Substance: BISOPROLOL FUMARATE
  41. MICROGESTIN FE 1.5 [Concomitant]
  42. FLORINEF ACETATE [Concomitant]
     Active Substance: FLUDROCORTISONE ACETATE
  43. LEXAPRO [Concomitant]
     Active Substance: ESCITALOPRAM OXALATE
  44. XYREM [Suspect]
     Active Substance: SODIUM OXYBATE
     Dosage: 4.5 G, BID
     Route: 048
     Dates: start: 201310
  45. VOLTAREN [Concomitant]
     Active Substance: DICLOFENAC SODIUM
  46. DULOXETINE HCL [Concomitant]
     Active Substance: DULOXETINE HYDROCHLORIDE
  47. NIZORAL [Concomitant]
     Active Substance: KETOCONAZOLE
  48. CYCLOBENZAPRINE [Concomitant]
     Active Substance: CYCLOBENZAPRINE
  49. VITAMIN C [Concomitant]
     Active Substance: ASCORBIC ACID
  50. DIPHENOXYLATE [Concomitant]
     Active Substance: DIPHENOXYLATE
  51. PRIMIDONE. [Concomitant]
     Active Substance: PRIMIDONE
  52. GABAPENTIN. [Concomitant]
     Active Substance: GABAPENTIN
  53. OXYCODONE AND ACETAMINOPHEN [Concomitant]
     Active Substance: ACETAMINOPHEN\OXYCODONE HYDROCHLORIDE
  54. LAMOTRIGINE. [Concomitant]
     Active Substance: LAMOTRIGINE
  55. HYDROCODONE BITARTRATE AND ACETAMINOPHEN [Concomitant]
     Active Substance: ACETAMINOPHEN\HYDROCODONE BITARTRATE
  56. MORPHINE SULF [Concomitant]
     Active Substance: MORPHINE SULFATE

REACTIONS (2)
  - Unevaluable event [Not Recovered/Not Resolved]
  - Abdominal discomfort [Unknown]
